FAERS Safety Report 9893544 (Version 2)
Quarter: 2014Q1

REPORT INFORMATION
  Report Type: Spontaneous
  Country: JP (occurrence: JP)
  Receive Date: 20140213
  Receipt Date: 20140224
  Transmission Date: 20141002
  Serious: Yes (Death)
  Sender: FDA-Public Use
  Company Number: PHHY2014JP016990

PATIENT
  Age: 55 Year
  Sex: Male
  Weight: 55.5 kg

DRUGS (12)
  1. CICLOSPORIN [Suspect]
     Indication: IMMUNOSUPPRESSION
  2. CICLOSPORIN [Suspect]
     Indication: AMYOTROPHIC LATERAL SCLEROSIS
  3. METHYLPREDNISOLONE [Suspect]
     Indication: IMMUNOSUPPRESSION
     Route: 041
  4. METHYLPREDNISOLONE [Suspect]
     Indication: AMYOTROPHIC LATERAL SCLEROSIS
  5. RILUZOLE [Suspect]
     Route: 048
  6. RITUXIMAB [Suspect]
     Indication: IMMUNOSUPPRESSION
  7. RITUXIMAB [Suspect]
     Indication: AMYOTROPHIC LATERAL SCLEROSIS
  8. IMMUNOGLOBULIN I.V [Suspect]
     Indication: IMMUNOSUPPRESSION
     Route: 042
     Dates: start: 201001
  9. IMMUNOGLOBULIN I.V [Suspect]
     Indication: AMYOTROPHIC LATERAL SCLEROSIS
     Route: 042
     Dates: start: 201002
  10. PLASMAPHERESIS BLOOD PACK UNIT [Suspect]
     Indication: IMMUNOSUPPRESSION
  11. PLASMAPHERESIS BLOOD PACK UNIT [Suspect]
     Indication: AMYOTROPHIC LATERAL SCLEROSIS
  12. PREDNISOLONE [Suspect]
     Dosage: 60 MG,PER DAY

REACTIONS (4)
  - Respiratory failure [Fatal]
  - Muscular weakness [Unknown]
  - Disease progression [Unknown]
  - Therapeutic response decreased [Unknown]
